FAERS Safety Report 9628136 (Version 1)
Quarter: 2013Q4

REPORT INFORMATION
  Report Type: Spontaneous
  Country: US (occurrence: US)
  Receive Date: 20131017
  Receipt Date: 20131017
  Transmission Date: 20140711
  Serious: No
  Sender: FDA-Public Use
  Company Number: US-US-EMD SERONO, INC.-7242539

PATIENT
  Age: 17 Year
  Sex: Female
  Weight: 45 kg

DRUGS (3)
  1. REBIF [Suspect]
     Indication: PRODUCT USED FOR UNKNOWN INDICATION
     Route: 058
     Dates: start: 201112, end: 201212
  2. REBIF [Suspect]
     Route: 058
     Dates: start: 20131006
  3. MULTIVITAMINS [Concomitant]
     Indication: PRODUCT USED FOR UNKNOWN INDICATION

REACTIONS (4)
  - Insomnia [Unknown]
  - Migraine [Recovering/Resolving]
  - Feeling cold [Unknown]
  - Injection site pain [Not Recovered/Not Resolved]
